FAERS Safety Report 14510967 (Version 2)
Quarter: 2018Q1

REPORT INFORMATION
  Report Type: Spontaneous
  Country: US (occurrence: US)
  Receive Date: 20180209
  Receipt Date: 20180214
  Transmission Date: 20180509
  Serious: Yes (Other)
  Sender: FDA-Public Use
  Company Number: US-NEPHRON STERILE COMPOUNDING CENTER-2041694

PATIENT

DRUGS (1)
  1. PF-SUCCINYLCHOLINE CHLORIDE INJECTION 20 MG/ML [Suspect]
     Active Substance: SUCCINYLCHOLINE CHLORIDE
     Indication: SURGERY
     Route: 040
     Dates: start: 20180125, end: 20180125

REACTIONS (1)
  - Drug ineffective [Recovered/Resolved]

NARRATIVE: CASE EVENT DATE: 20180125
